FAERS Safety Report 19701397 (Version 1)
Quarter: 2021Q3

REPORT INFORMATION
  Report Type: Spontaneous
  Country: US (occurrence: US)
  Receive Date: 20210813
  Receipt Date: 20210813
  Transmission Date: 20211014
  Serious: Yes (Other)
  Sender: FDA-Public Use
  Company Number: US-ALLERMED LABORATORIES, INC.-2115018

PATIENT
  Age: 8 Year
  Sex: Female

DRUGS (38)
  1. POLLENS ? TREES, PINE MIX [Suspect]
     Active Substance: PINUS CONTORTA POLLEN\PINUS PONDEROSA POLLEN
     Dates: start: 20210729
  2. 2 COCKROACH MIX [Suspect]
     Active Substance: BLATELLA GERMANICA\PERIPLANETA AMERICANA
     Dates: start: 20210729
  3. MOLDS, RUSTS AND SMUTS, ALTERNARIA TENUIS (ALTERNATA) [Suspect]
     Active Substance: ALTERNARIA ALTERNATA
     Dates: start: 20210729
  4. PENICILLIUM MIX [Suspect]
     Active Substance: PENICILLIUM CAMEMBERTI\PENICILLIUM CHRYSOGENUM VAR. CHRYSOGENUM\PENICILLIUM DIGITATUM\PENICILLIUM ROQUEFORTI
     Dates: start: 20210729
  5. MOLDS, RUSTS AND SMUTS, HELMINTHOSPORIUM SOLANI [Suspect]
     Active Substance: HELMINTHOSPORIUM SOLANI
     Dates: start: 20210729
  6. MOLDS, RUSTS AND SMUTS, CLADOSPORIUM HERBARUM [Suspect]
     Active Substance: CLADOSPORIUM HERBARUM
     Dates: start: 20210729
  7. POLLENS ? TREES, ELM, AMERICAN ULMUS AMERICANA [Suspect]
     Active Substance: ULMUS AMERICANA POLLEN
     Dates: start: 20210729
  8. POLLENS ? WEEDS AND GARDEN PLANTS, PLANTAIN, ENGLISH PLANTAGO LANCEOLATA [Suspect]
     Active Substance: PLANTAGO LANCEOLATA POLLEN
     Dates: start: 20210729
  9. MOLDS, RUSTS AND SMUTS, CLADOSPORIUM SPHAEROSPERMUM [Suspect]
     Active Substance: CLADOSPORIUM SPHAEROSPERMUM
     Dates: start: 20210729
  10. FUSARIUM MIX [Suspect]
     Active Substance: GIBBERELLA FUJIKUROI\HAEMATONECTRIA HAEMATOCOCCA
     Dates: start: 20210729
  11. POLLENS ? TREES, BIRCH MIX [Suspect]
     Active Substance: BETULA NIGRA POLLEN\BETULA PAPYRIFERA POLLEN\BETULA PENDULA POLLEN
     Dates: start: 20210729
  12. ANIMAL ALLERGENS, FEATHER MIX [Suspect]
     Active Substance: ANAS PLATYRHYNCHOS FEATHER\ANSER ANSER FEATHER\GALLUS GALLUS FEATHER
     Dates: start: 20210729
  13. DRECHSLERA SPICIFERA [Suspect]
     Active Substance: COCHLIOBOLUS SPICIFER
     Dates: start: 20210729
  14. STANDARDIZED BERMUDA GRASS [Suspect]
     Active Substance: CYNODON DACTYLON POLLEN
     Dates: start: 20210729
  15. POLLENS ? TREES, BOXELDER/MAPLE MIX [Suspect]
     Active Substance: ACER NEGUNDO POLLEN\ACER RUBRUM POLLEN\ACER SACCHARUM POLLEN
     Dates: start: 20210729
  16. POLLENS ? TREES, COTTONWOOD, EASTERN, POPULUS DELTOIDES [Suspect]
     Active Substance: POPULUS DELTOIDES POLLEN
     Dates: start: 20210729
  17. HICKORY POLLEN MIX [Suspect]
     Active Substance: CARYA ALBA POLLEN\CARYA GLABRA POLLEN\CARYA LACINIOSA POLLEN\CARYA OVATA POLLEN
     Dates: start: 20210729
  18. POLLENS ? TREES, MULBERRY, WHITE, MORUS ALBA [Suspect]
     Active Substance: MORUS ALBA POLLEN
     Dates: start: 20210729
  19. POLLENS ? TREES, CEDAR, RED JUNIPERUS VIRGINIANA [Suspect]
     Active Substance: JUNIPERUS VIRGINIANA POLLEN
     Dates: start: 20210729
  20. POLLENS ? WEEDS AND GARDEN PLANTS, SAGEBRUSH, MUGWORT ARTEMISIA VULGARIS [Suspect]
     Active Substance: ARTEMISIA VULGARIS POLLEN
     Dates: start: 20210729
  21. POLLENS ? WEEDS AND GARDEN PLANTS, COCKLEBUR XANTHIUM STRUMARIUM [Suspect]
     Active Substance: XANTHIUM STRUMARIUM POLLEN
     Dates: start: 20210729
  22. LAMBS QUARTER [Suspect]
     Active Substance: CHENOPODIUM ALBUM POLLEN
     Dates: start: 20210729
  23. POLLENS ? WEEDS AND GARDEN PLANTS, NETTLE URTICA DIOICA [Suspect]
     Active Substance: URTICA DIOICA POLLEN
     Dates: start: 20210729
  24. ASH MIXTURE [Suspect]
     Active Substance: FRAXINUS AMERICANA POLLEN\FRAXINUS PENNSYLVANICA POLLEN
     Dates: start: 20210729
  25. POLLENS ? GRASSES, K?O?R?T + SWEET VERNAL GRASS MIX [Suspect]
     Active Substance: AGROSTIS GIGANTEA POLLEN\ANTHOXANTHUM ODORATUM POLLEN\DACTYLIS GLOMERATA POLLEN\PHLEUM PRATENSE POLLEN\POA PRATENSIS POLLEN
     Dates: start: 20210729
  26. POLLENS ? TREES, EASTERN OAK MIX [Suspect]
     Active Substance: QUERCUS ALBA POLLEN\QUERCUS RUBRA POLLEN\QUERCUS VELUTINA POLLEN
     Dates: start: 20210729
  27. POLLENS ? WEEDS AND GARDEN PLANTS, PIGWEED, ROUGH REDROOT AMARANTHUS RETROFLEXUS [Suspect]
     Active Substance: AMARANTHUS RETROFLEXUS POLLEN
     Dates: start: 20210729
  28. POLLENS ? TREES, SYCAMORE, PLATANUS OCCIDENTALIS [Suspect]
     Active Substance: PLATANUS OCCIDENTALIS POLLEN
     Dates: start: 20210729
  29. POLLENS ? TREES, HACKBERRY CELTIS OCCIDENTALIS [Suspect]
     Active Substance: CELTIS OCCIDENTALIS POLLEN
     Dates: start: 20210729
  30. POLLENS ? WEEDS AND GARDEN PLANTS, RAGWEED, MIXED AMBROSIA [Suspect]
     Active Substance: AMBROSIA ARTEMISIIFOLIA POLLEN\AMBROSIA TRIFIDA POLLEN
     Dates: start: 20210729
  31. STANDARDIZED CAT HAIR [Suspect]
     Active Substance: FELIS CATUS HAIR
     Dates: start: 20210729
  32. STANDARDIZED MITE DERMATOPHAGOIDES PTERONYSSINUS [Suspect]
     Active Substance: DERMATOPHAGOIDES PTERONYSSINUS
     Dates: start: 20210729
  33. ALLERGENIC EXTRACT? MITE, DERMATOPHAGOIDES FARINAE [Suspect]
     Active Substance: DERMATOPHAGOIDES FARINAE
     Dates: start: 20210729
  34. ASPERGILLUS MIX [Suspect]
     Active Substance: ASPERGILLUS FLAVUS\ASPERGILLUS FUMIGATUS\ASPERGILLUS NIDULANS\ASPERGILLUS NIGER VAR. NIGER\EUROTIUM AMSTELODAMI
     Dates: start: 20210729
  35. RHIZOPUS MIX [Suspect]
     Active Substance: RHIZOPUS ARRHIZUS\RHIZOPUS STOLONIFER
     Dates: start: 20210729
  36. MOLDS, RUSTS AND SMUTS, AUREOBASIDIUM PULLULANS [Suspect]
     Active Substance: AUREOBASIDIUM PULLULANS VAR. PULLUTANS
     Dates: start: 20210729
  37. SORREL/DOCK MIX [Suspect]
     Active Substance: RUMEX ACETOSELLA WHOLE\RUMEX CRISPUS
     Dates: start: 20210729
  38. ANIMAL ALLERGENS, DOG EPITHELIA, CANIS FAMILIARIS [Suspect]
     Active Substance: CANIS LUPUS FAMILIARIS SKIN
     Dates: start: 20210729

REACTIONS (1)
  - Anaphylactic reaction [Recovered/Resolved]

NARRATIVE: CASE EVENT DATE: 20210729
